FAERS Safety Report 24721114 (Version 1)
Quarter: 2024Q4

REPORT INFORMATION
  Report Type: Spontaneous
  Country: CN (occurrence: CN)
  Receive Date: 20241211
  Receipt Date: 20241211
  Transmission Date: 20250114
  Serious: Yes (Hospitalization)
  Sender: CHEPLAPHARM
  Company Number: CN-CHEPLA-2024013711

PATIENT
  Age: 61 Year
  Sex: Female
  Weight: 52.7 kg

DRUGS (11)
  1. CAPECITABINE [Suspect]
     Active Substance: CAPECITABINE
     Indication: Gastric cancer
     Dosage: APPROVAL NO. GYZZ H20073024, BID, 14 DAYS ?DAILY DOSE: 2000 MILLIGRAM
     Route: 048
     Dates: start: 20240923, end: 20241007
  2. CAPECITABINE [Suspect]
     Active Substance: CAPECITABINE
     Indication: Gastric cancer
     Dosage: APPROVAL NO. GYZZ H20073024, BID, 14 DAYS ?DAILY DOSE: 2000 MILLIGRAM
     Route: 048
     Dates: start: 20241019, end: 20241101
  3. OXALIPLATIN [Suspect]
     Active Substance: OXALIPLATIN
     Indication: Gastric cancer
     Dosage: APPROVAL NO. GYZZ J20150117?DAILY DOSE: 150 MILLIGRAM
     Route: 042
     Dates: start: 20240919, end: 20240919
  4. OXALIPLATIN [Suspect]
     Active Substance: OXALIPLATIN
     Indication: Gastric cancer
     Dosage: APPROVAL NO. GYZZ J20150117?DAILY DOSE: 150 MILLIGRAM
     Route: 042
     Dates: start: 20241017, end: 20241017
  5. PEMBROLIZUMAB [Suspect]
     Active Substance: PEMBROLIZUMAB
     Indication: Gastric cancer
     Dosage: APPROVAL NO. S20180019?DAILY DOSE: 200 MILLIGRAM
     Route: 042
     Dates: start: 20240921, end: 20240921
  6. PEMBROLIZUMAB [Suspect]
     Active Substance: PEMBROLIZUMAB
     Indication: Gastric cancer
     Dosage: APPROVAL NO. S20180019?DAILY DOSE: 200 MILLIGRAM
     Route: 042
     Dates: start: 20241016, end: 20241016
  7. SODIUM CHLORIDE [Concomitant]
     Active Substance: SODIUM CHLORIDE
     Indication: Medication dilution
     Dosage: APPROVAL NO. GYZZ H20013310?DAILY DOSE: 100 MILLILITRE
     Route: 042
     Dates: start: 20240921, end: 20240921
  8. SODIUM CHLORIDE [Concomitant]
     Active Substance: SODIUM CHLORIDE
     Indication: Medication dilution
     Dosage: APPROVAL NO. GYZZ H20013310?DAILY DOSE: 100 MILLILITRE
     Route: 042
     Dates: start: 20241016, end: 20241016
  9. DEXTROSE [Concomitant]
     Active Substance: DEXTROSE MONOHYDRATE
     Indication: Medication dilution
     Dosage: APPROVAL NO. GYZZ H37021825?DAILY DOSE: 500 MILLILITRE
     Route: 042
     Dates: start: 20240919, end: 20240919
  10. DEXTROSE [Concomitant]
     Active Substance: DEXTROSE MONOHYDRATE
     Indication: Medication dilution
     Dosage: APPROVAL NO. GYZZ H37021825?DAILY DOSE: 500 MILLILITRE
     Route: 042
     Dates: start: 20241017, end: 20241017
  11. LEUCOGEN [Concomitant]
     Active Substance: LEUCOGEN
     Indication: Prophylaxis
     Dosage: APPROVAL NO. GYZZ H32025444, TID ?DAILY DOSE: 60 MILLIGRAM
     Route: 048
     Dates: start: 20240923, end: 20241009

REACTIONS (5)
  - Cystitis [Recovering/Resolving]
  - Nephritis [Recovering/Resolving]
  - Ureteritis [Recovering/Resolving]
  - White blood cell count decreased [Recovering/Resolving]
  - Neutrophil count decreased [Recovering/Resolving]

NARRATIVE: CASE EVENT DATE: 20241005
